FAERS Safety Report 13681011 (Version 1)
Quarter: 2017Q2

REPORT INFORMATION
  Report Type: Report from Study
  Country: None (occurrence: US)
  Receive Date: 20170623
  Receipt Date: 20170623
  Transmission Date: 20170830
  Serious: Yes (Other)
  Sender: FDA-Public Use
  Company Number: US-ABBVIE-17K-163-1945179-00

PATIENT
  Age: 68 Year
  Sex: Female

DRUGS (5)
  1. HUMIRA [Suspect]
     Active Substance: ADALIMUMAB
     Route: 058
     Dates: start: 20170516, end: 20170516
  2. HUMIRA [Suspect]
     Active Substance: ADALIMUMAB
     Route: 058
     Dates: start: 20170613
  3. LASIX [Concomitant]
     Active Substance: FUROSEMIDE
     Indication: FLUID RETENTION
  4. HUMIRA [Suspect]
     Active Substance: ADALIMUMAB
     Route: 058
     Dates: start: 20170530, end: 20170530
  5. HUMIRA [Suspect]
     Active Substance: ADALIMUMAB
     Indication: CROHN^S DISEASE
     Route: 058
     Dates: start: 2015, end: 201612

REACTIONS (11)
  - Sleep terror [Recovering/Resolving]
  - Tinnitus [Unknown]
  - Somnolence [Recovering/Resolving]
  - Chronic obstructive pulmonary disease [Unknown]
  - Gastrointestinal haemorrhage [Recovered/Resolved]
  - Sleep apnoea syndrome [Recovering/Resolving]
  - Restless legs syndrome [Not Recovered/Not Resolved]
  - Nausea [Unknown]
  - Loss of consciousness [Recovering/Resolving]
  - Nephrolithiasis [Unknown]
  - Respiratory tract congestion [Unknown]

NARRATIVE: CASE EVENT DATE: 201608
